FAERS Safety Report 8192923-5 (Version None)
Quarter: 2012Q1

REPORT INFORMATION
  Report Type: 
  Country: None (occurrence: None)
  Receive Date: 20120308
  Receipt Date: 20120229
  Transmission Date: 20120608
  Serious: Yes (Death)
  Sender: FDA-Public Use
  Company Number: VI-BAYER-2012-021175

PATIENT
  Age: 65 Year
  Sex: Male

DRUGS (4)
  1. NEXAVAR [Suspect]
     Indication: HEPATIC NEOPLASM MALIGNANT
     Dosage: 400 MG, BID
     Route: 048
  2. IBUPROFEN [Concomitant]
  3. DILANTIN [Concomitant]
  4. LIBRIUM [Concomitant]

REACTIONS (1)
  - DEATH [None]
